FAERS Safety Report 12721129 (Version 1)
Quarter: 2016Q3

REPORT INFORMATION
  Report Type: Spontaneous
  Country: GB (occurrence: GB)
  Receive Date: 20160907
  Receipt Date: 20160907
  Transmission Date: 20161109
  Serious: Yes (Hospitalization, Disabling)
  Sender: FDA-Public Use
  Company Number: GB-TEVA-688100ACC

PATIENT
  Age: 73 Year
  Sex: Female
  Weight: 66.67 kg

DRUGS (7)
  1. ACCORD HEALTHCARE LISINOPRIL [Concomitant]
     Active Substance: LISINOPRIL
  2. EVOREL [Concomitant]
     Route: 062
  3. CEFALEXIN [Concomitant]
     Active Substance: CEPHALEXIN
  4. ATORVASTATIN [Concomitant]
     Active Substance: ATORVASTATIN
  5. NITROFURANTOIN. [Suspect]
     Active Substance: NITROFURANTOIN
     Indication: URINARY TRACT INFECTION
     Dosage: I CANNOT REMEMBER.?TAKEN INTERMITTENTLY.
     Route: 048
     Dates: start: 201411, end: 201503
  6. DOXYCYCLINE. [Concomitant]
     Active Substance: DOXYCYCLINE
  7. ASPIRIN COATED [Concomitant]
     Active Substance: ASPIRIN

REACTIONS (8)
  - Atrial fibrillation [Recovered/Resolved with Sequelae]
  - Malaise [Recovered/Resolved]
  - Vulvovaginal pain [Unknown]
  - Palpitations [Recovered/Resolved with Sequelae]
  - Bladder irritation [Recovered/Resolved with Sequelae]
  - Feeling abnormal [Recovered/Resolved]
  - Bladder pain [Recovered/Resolved with Sequelae]
  - Constipation [Not Recovered/Not Resolved]

NARRATIVE: CASE EVENT DATE: 201411
